FAERS Safety Report 5836311-2 (Version None)
Quarter: 2008Q3

REPORT INFORMATION
  Report Type: 
  Country: None (occurrence: None)
  Receive Date: 20080801
  Receipt Date: 20080626
  Transmission Date: 20090109
  Serious: Yes (Hospitalization)
  Sender: FDA-Public Use
  Company Number: PHEH2008US05762

PATIENT
  Age: 73 Year
  Sex: Female

DRUGS (1)
  1. EXELON [Suspect]
     Indication: VASCULAR DEMENTIA
     Dosage: 4.6 MG, TRANSDERMAL
     Route: 062
     Dates: start: 20080201

REACTIONS (4)
  - APPLICATION SITE ERYTHEMA [None]
  - APPLICATION SITE IRRITATION [None]
  - CATHETERISATION CARDIAC [None]
  - CHEST PAIN [None]
